FAERS Safety Report 12480599 (Version 1)
Quarter: 2016Q2

REPORT INFORMATION
  Report Type: Spontaneous
  Country: DK (occurrence: DK)
  Receive Date: 20160620
  Receipt Date: 20160620
  Transmission Date: 20160815
  Serious: Yes (Hospitalization, Other)
  Sender: FDA-Public Use
  Company Number: DK-GLAXOSMITHKLINE-DK2016GSK086870

PATIENT
  Age: 62 Year
  Sex: Female

DRUGS (7)
  1. LITHIUM CARBONATE. [Suspect]
     Active Substance: LITHIUM CARBONATE
     Indication: PRODUCT USED FOR UNKNOWN INDICATION
     Dosage: 600 MG, QD
  2. LAMOTRIGINE. [Suspect]
     Active Substance: LAMOTRIGINE
     Indication: EPILEPSY
     Dosage: 75 MG, QD
  3. VALPROATE [Suspect]
     Active Substance: VALPROIC ACID
     Indication: EPILEPSY
     Dosage: 1500 MG, QD
  4. VENLAFAXINE [Concomitant]
     Active Substance: VENLAFAXINE HYDROCHLORIDE
     Indication: DEPRESSION
  5. VALPROATE [Suspect]
     Active Substance: VALPROIC ACID
     Indication: DEPRESSION
  6. VENLAFAXINE [Concomitant]
     Active Substance: VENLAFAXINE HYDROCHLORIDE
     Indication: EPILEPSY
     Dosage: 375 MG, QD
  7. LAMOTRIGINE. [Suspect]
     Active Substance: LAMOTRIGINE
     Indication: DEPRESSION

REACTIONS (16)
  - Nystagmus [Recovered/Resolved]
  - Toxicity to various agents [Recovered/Resolved]
  - Anticonvulsant drug level above therapeutic [Unknown]
  - Asthenia [Unknown]
  - Condition aggravated [Unknown]
  - Cognitive disorder [Recovered/Resolved]
  - Antipsychotic drug level increased [Recovered/Resolved]
  - Gaze palsy [Recovered/Resolved]
  - Ataxia [Unknown]
  - Tremor [Recovered/Resolved]
  - Fall [Unknown]
  - Gait disturbance [Unknown]
  - Saccadic eye movement [Recovered/Resolved]
  - Diplopia [Recovered/Resolved]
  - Antidepressant drug level above therapeutic [Unknown]
  - Retrograde amnesia [Unknown]
